FAERS Safety Report 9314491 (Version 1)
Quarter: 2013Q2

REPORT INFORMATION
  Report Type: Spontaneous
  Country: CO (occurrence: CO)
  Receive Date: 20130529
  Receipt Date: 20130529
  Transmission Date: 20140414
  Serious: Yes (Other)
  Sender: FDA-Public Use
  Company Number: CO-PFIZER INC-2013162062

PATIENT
  Age: 14 Year
  Sex: Female

DRUGS (1)
  1. GENOTROPIN [Suspect]
     Indication: GROWTH HORMONE DEFICIENCY
     Dosage: 3 MG, 1X/DAY
     Route: 058
     Dates: start: 20120831

REACTIONS (3)
  - Convulsion [Not Recovered/Not Resolved]
  - Syncope [Not Recovered/Not Resolved]
  - Tremor [Not Recovered/Not Resolved]
